FAERS Safety Report 11261681 (Version 2)
Quarter: 2015Q3

REPORT INFORMATION
  Report Type: Spontaneous
  Country: US (occurrence: US)
  Receive Date: 20150710
  Receipt Date: 20150715
  Transmission Date: 20151125
  Serious: No
  Sender: FDA-Public Use
  Company Number: US-PFIZER INC-2015229724

PATIENT
  Age: 55 Year
  Sex: Female
  Weight: 86 kg

DRUGS (1)
  1. XELJANZ [Suspect]
     Active Substance: TOFACITINIB CITRATE
     Indication: RHEUMATOID ARTHRITIS
     Dosage: 5 MG, 2X/DAY
     Route: 048

REACTIONS (5)
  - Feeling jittery [Unknown]
  - Drug ineffective [Unknown]
  - Fatigue [Unknown]
  - Headache [Unknown]
  - Insomnia [Recovered/Resolved]

NARRATIVE: CASE EVENT DATE: 201507
